FAERS Safety Report 4959032-7 (Version None)
Quarter: 2006Q1

REPORT INFORMATION
  Report Type: 
  Country: None (occurrence: None)
  Receive Date: 20060331
  Receipt Date: 20060217
  Transmission Date: 20060701
  Serious: Yes (Other)
  Sender: FDA-Public Use
  Company Number: DEWYE373308FEB06

PATIENT
  Sex: Male

DRUGS (1)
  1. ENBREL [Suspect]
     Indication: PSORIASIS
     Dosage: UNKNOWN
     Route: 058
     Dates: start: 20060112

REACTIONS (4)
  - ANGINA PECTORIS [None]
  - CORONARY ARTERY DISEASE [None]
  - FATIGUE [None]
  - SOMNOLENCE [None]
